FAERS Safety Report 17886523 (Version 3)
Quarter: 2020Q2

REPORT INFORMATION
  Report Type: Spontaneous
  Country: US (occurrence: US)
  Receive Date: 20200611
  Receipt Date: 20200615
  Transmission Date: 20200714
  Serious: Yes (Other)
  Sender: FDA-Public Use
  Company Number: US-PFIZER INC-2020227687

PATIENT
  Age: 71 Year
  Sex: Female

DRUGS (1)
  1. LIOTHYRONINE SODIUM. [Suspect]
     Active Substance: LIOTHYRONINE SODIUM
     Dosage: 5 UG

REACTIONS (9)
  - Dizziness [Unknown]
  - Thyroid neoplasm [Unknown]
  - Reaction to excipient [Unknown]
  - Nausea [Unknown]
  - Product dispensing error [Unknown]
  - Feeling abnormal [Unknown]
  - Nervousness [Unknown]
  - Product appearance confusion [Unknown]
  - Abdominal discomfort [Unknown]
